FAERS Safety Report 7648970-2 (Version None)
Quarter: 2011Q3

REPORT INFORMATION
  Report Type: 
  Country: None (occurrence: None)
  Receive Date: 20110802
  Receipt Date: 20110720
  Transmission Date: 20111222
  Serious: Yes (Death, Hospitalization)
  Sender: FDA-Public Use
  Company Number: US-BIOGENIDEC-2011BI013680

PATIENT
  Age: 55 Year
  Sex: Male

DRUGS (14)
  1. OXYBUTYNIN CHLORIDE [Concomitant]
     Indication: HYPERTONIC BLADDER
  2. ZYPREXA [Concomitant]
     Indication: AGITATION
  3. LYRICA [Concomitant]
  4. DEPAKOTE [Concomitant]
     Route: 048
  5. VITAMIN D [Concomitant]
     Route: 048
  6. CYMBALTA [Concomitant]
  7. HYDROCODONE BITARTRATE AND ACETAMINOPHEN [Concomitant]
  8. NORVASC [Concomitant]
     Route: 048
  9. BACLOFEN [Concomitant]
  10. TYSABRI [Suspect]
     Indication: MULTIPLE SCLEROSIS
     Route: 042
     Dates: start: 20080306, end: 20110128
  11. ASPIRIN [Concomitant]
     Route: 048
  12. PEPCID [Concomitant]
     Route: 048
  13. TYLENOL-500 [Concomitant]
     Route: 048
  14. MS CONTIN XR 12H [Concomitant]
     Route: 048

REACTIONS (5)
  - DELIRIUM [None]
  - DRUG DELIVERY DEVICE IMPLANTATION [None]
  - PAIN [None]
  - MENINGITIS STAPHYLOCOCCAL [None]
  - PNEUMONIA ASPIRATION [None]
